FAERS Safety Report 9225771 (Version 1)
Quarter: 2013Q2

REPORT INFORMATION
  Report Type: Spontaneous
  Country: US (occurrence: None)
  Receive Date: 20130410
  Receipt Date: 20130410
  Transmission Date: 20140414
  Serious: Yes (Other)
  Sender: FDA-Public Use
  Company Number: None

PATIENT
  Age: 53 Year
  Sex: Female
  Weight: 77.11 kg

DRUGS (1)
  1. TAMOXIFEN [Suspect]
     Indication: BREAST CANCER
     Dosage: 1 TABLET ONCE A DAY
     Route: 048
     Dates: start: 20130312, end: 20130315

REACTIONS (1)
  - Urticaria [None]
